FAERS Safety Report 5939706-1 (Version None)
Quarter: 2008Q4

REPORT INFORMATION
  Report Type: 
  Country: None (occurrence: None)
  Receive Date: 20081030
  Receipt Date: 20081030
  Transmission Date: 20090506
  Serious: Yes (Life-Threatening)
  Sender: FDA-Public Use
  Company Number: None

PATIENT
  Sex: Female
  Weight: 104.3273 kg

DRUGS (1)
  1. CHANTIX [Suspect]
     Indication: SMOKING CESSATION THERAPY
     Dosage: 0.5 MG B.I.D. TWICE DAILY PO
     Route: 048
     Dates: start: 20081020, end: 20081026

REACTIONS (2)
  - AGGRESSION [None]
  - SUICIDE ATTEMPT [None]
